FAERS Safety Report 14485731 (Version 2)
Quarter: 2018Q2

REPORT INFORMATION
  Report Type: Spontaneous
  Country: US (occurrence: US)
  Receive Date: 20180205
  Receipt Date: 20180511
  Transmission Date: 20180711
  Serious: Yes (Other)
  Sender: FDA-Public Use
  Company Number: US-DSJP-DSU-2017-144919

PATIENT

DRUGS (2)
  1. BENICAR [Suspect]
     Active Substance: OLMESARTAN MEDOXOMIL
     Dosage: 40 MG, QD
     Dates: start: 20131107, end: 20140707
  2. BENICAR [Suspect]
     Active Substance: OLMESARTAN MEDOXOMIL
     Indication: HYPERTENSION
     Dosage: 20 MG, QD
     Dates: start: 20050119, end: 20131107

REACTIONS (8)
  - Gastrooesophageal reflux disease [Unknown]
  - Diverticulitis [Recovered/Resolved]
  - Gastric polyps [Recovered/Resolved]
  - Sprue-like enteropathy [Recovered/Resolved]
  - Large intestine polyp [Unknown]
  - Hiatus hernia [Unknown]
  - Diverticulum [Unknown]
  - Haemorrhoids [Recovered/Resolved]

NARRATIVE: CASE EVENT DATE: 20131011
